FAERS Safety Report 8426865-4 (Version None)
Quarter: 2012Q2

REPORT INFORMATION
  Report Type: 
  Country: None (occurrence: None)
  Receive Date: 20120611
  Receipt Date: 20120531
  Transmission Date: 20120825
  Serious: Yes (Hospitalization)
  Sender: FDA-Public Use
  Company Number: US-JNJFOC-20120517728

PATIENT
  Sex: Male
  Weight: 35 kg

DRUGS (11)
  1. CREON [Concomitant]
  2. HYDROCORTISONE [Concomitant]
  3. FLUTICASONE FUROATE [Concomitant]
  4. MESALAMINE [Concomitant]
     Route: 048
  5. OMEPRAZOLE [Concomitant]
  6. ALBUTEROL [Concomitant]
  7. PIPERACILLIN [Concomitant]
  8. REMICADE [Suspect]
     Indication: INFLAMMATORY BOWEL DISEASE
     Route: 042
     Dates: start: 20111230
  9. DORNASE ALFA [Concomitant]
  10. PROBIOTICS [Concomitant]
  11. TOBRAMYCIN [Concomitant]

REACTIONS (1)
  - CROHN'S DISEASE [None]
